FAERS Safety Report 17565154 (Version 1)
Quarter: 2020Q1

REPORT INFORMATION
  Report Type: Spontaneous
  Country: US (occurrence: US)
  Receive Date: 20200320
  Receipt Date: 20200320
  Transmission Date: 20200409
  Serious: No
  Sender: FDA-Public Use
  Company Number: US-MYLANLABS-2020M1028246

PATIENT
  Age: 82 Year
  Sex: Male

DRUGS (1)
  1. ERYTHROMYCIN TOPICAL GEL USP [Suspect]
     Active Substance: ERYTHROMYCIN
     Indication: RASH
     Dosage: AS NEEDED FOR RASH IN THE GROIN AREA

REACTIONS (2)
  - Off label use [Unknown]
  - Product packaging quantity issue [Unknown]

NARRATIVE: CASE EVENT DATE: 20200309
